FAERS Safety Report 7274599-4 (Version None)
Quarter: 2011Q1

REPORT INFORMATION
  Report Type: 
  Country: None (occurrence: None)
  Receive Date: 20110204
  Receipt Date: 20110127
  Transmission Date: 20110831
  Serious: Yes (Hospitalization, Other)
  Sender: FDA-Public Use
  Company Number: CA-JNJFOC-20110200568

PATIENT
  Age: 15 Year
  Sex: Male

DRUGS (5)
  1. VENTOLIN [Suspect]
     Indication: ILL-DEFINED DISORDER
     Dosage: WHEN NECESSARY
     Route: 065
  2. RISPERIDONE [Suspect]
     Indication: DISTURBANCE IN SOCIAL BEHAVIOUR
     Dosage: AT NIGHT
     Route: 048
  3. RISPERIDONE [Suspect]
     Indication: DEPRESSION
     Dosage: AT NIGHT
     Route: 048
  4. METHYLPHENIDATE [Suspect]
     Indication: ILL-DEFINED DISORDER
     Route: 065
  5. TESTOSTERONE [Suspect]
     Indication: ILL-DEFINED DISORDER
     Route: 030

REACTIONS (1)
  - PULMONARY EMBOLISM [None]
